FAERS Safety Report 6221290-9 (Version None)
Quarter: 2009Q2

REPORT INFORMATION
  Report Type: 
  Country: None (occurrence: None)
  Receive Date: 20090610
  Receipt Date: 20090605
  Transmission Date: 20091009
  Serious: Yes (Hospitalization)
  Sender: FDA-Public Use
  Company Number: JP-BRISTOL-MYERS SQUIBB COMPANY-14628887

PATIENT
  Age: 55 Year
  Sex: Male
  Weight: 54 kg

DRUGS (3)
  1. ERBITUX [Suspect]
     Indication: RECTAL CANCER
     Dosage: ON 08MAY09 FOURTH INFUSION OF CETUXIMAB WAS GIVEN
     Route: 042
     Dates: start: 20090416, end: 20090507
  2. RESTAMINE [Concomitant]
     Indication: PREMEDICATION
     Dosage: FORM-TABS
     Route: 048
     Dates: start: 20090416, end: 20090507
  3. DECADRON [Concomitant]
     Indication: PREMEDICATION
     Route: 042
     Dates: start: 20090416, end: 20090507

REACTIONS (1)
  - NEUROPATHY PERIPHERAL [None]
